FAERS Safety Report 20246819 (Version 2)
Quarter: 2022Q1

REPORT INFORMATION
  Report Type: Spontaneous
  Country: US (occurrence: US)
  Receive Date: 20211229
  Receipt Date: 20220222
  Transmission Date: 20220423
  Serious: Yes (Other)
  Sender: FDA-Public Use
  Company Number: US-BAYER-2021A273518

PATIENT
  Age: 36 Year
  Sex: Male

DRUGS (5)
  1. KOGENATE FS [Suspect]
     Active Substance: ANTIHEMOPHILIC FACTOR, HUMAN RECOMBINANT
     Indication: Factor VIII deficiency
     Dosage: 3800 IU, TIW
     Route: 041
     Dates: start: 20210922
  2. KOGENATE FS [Suspect]
     Active Substance: ANTIHEMOPHILIC FACTOR, HUMAN RECOMBINANT
     Indication: Factor VIII deficiency
     Dosage: 3800 IU, ONCE - TO TREAT ANKLE SWELLING
     Route: 041
  3. KOGENATE FS [Suspect]
     Active Substance: ANTIHEMOPHILIC FACTOR, HUMAN RECOMBINANT
     Indication: Factor VIII deficiency
     Dosage: 3412 IU, ONCE - TO TREAT ANKLE SWELLING
     Route: 041
  4. KOGENATE FS [Suspect]
     Active Substance: ANTIHEMOPHILIC FACTOR, HUMAN RECOMBINANT
     Indication: Factor VIII deficiency
     Dosage: 3412 IU, ONCE - TO TREAT ANKLE SWELLING
     Route: 041
  5. KOGENATE FS [Suspect]
     Active Substance: ANTIHEMOPHILIC FACTOR, HUMAN RECOMBINANT
     Indication: Factor VIII deficiency
     Dosage: 3412 IU, ONCE - TO TREAT ANKLE SWELLING
     Route: 041

REACTIONS (1)
  - Joint swelling [Recovered/Resolved]
